FAERS Safety Report 5620806-0 (Version None)
Quarter: 2008Q1

REPORT INFORMATION
  Report Type: 
  Country: None (occurrence: None)
  Receive Date: 20080208
  Receipt Date: 20080204
  Transmission Date: 20080703
  Serious: Yes (Hospitalization, Other)
  Sender: FDA-Public Use
  Company Number: US-PFIZER INC-2006149947

PATIENT
  Sex: Female
  Weight: 72.6 kg

DRUGS (6)
  1. BEXTRA [Suspect]
     Indication: BACK PAIN
     Route: 048
  2. VIOXX [Suspect]
     Indication: BACK PAIN
     Route: 048
     Dates: start: 20030401, end: 20040930
  3. METOPROLOL TARTRATE [Concomitant]
     Indication: HYPERTENSION
  4. METOPROLOL TARTRATE [Concomitant]
     Indication: CARDIAC DISORDER
  5. METOPROLOL TARTRATE [Concomitant]
     Indication: MYOCARDIAL INFARCTION
  6. METOPROLOL TARTRATE [Concomitant]
     Indication: CHEST PAIN

REACTIONS (1)
  - CEREBROVASCULAR ACCIDENT [None]
